APPROVED DRUG PRODUCT: METHOTREXATE SODIUM PRESERVATIVE FREE
Active Ingredient: METHOTREXATE SODIUM
Strength: EQ 1GM BASE/40ML (EQ 25MG BASE/ML)
Dosage Form/Route: INJECTABLE;INJECTION
Application: A203407 | Product #003 | TE Code: AP
Applicant: SAGENT PHARMACEUTICALS INC
Approved: Aug 9, 2018 | RLD: No | RS: No | Type: RX